FAERS Safety Report 18725926 (Version 2)
Quarter: 2021Q1

REPORT INFORMATION
  Report Type: Spontaneous
  Country: US (occurrence: US)
  Receive Date: 20210111
  Receipt Date: 20210210
  Transmission Date: 20210419
  Serious: Yes (Other)
  Sender: FDA-Public Use
  Company Number: US-BAUSCH-BL-2020-039421

PATIENT
  Age: 39 Year
  Sex: Female
  Weight: 55.39 kg

DRUGS (11)
  1. SOLODYN [Suspect]
     Active Substance: MINOCYCLINE HYDROCHLORIDE
     Indication: ACNE
     Route: 048
     Dates: start: 20100907, end: 20110106
  2. LATISSE [Concomitant]
     Active Substance: BIMATOPROST
     Indication: HYPOTRICHOSIS
     Dosage: USE TO UPPER EYELIDS, AT BEDTIME (QHS), AS NEEDED TO MAINTAIN
  3. VELTIN [Concomitant]
     Active Substance: CLINDAMYCIN PHOSPHATE\TRETINOIN
     Indication: ACNE
     Dosage: 1.2%/0.025% GEL, APPLY TO SKIN AT BEDTIME AS TOLERATED
     Route: 061
     Dates: start: 20110709
  4. VELTIN [Concomitant]
     Active Substance: CLINDAMYCIN PHOSPHATE\TRETINOIN
     Dosage: 1.2%/0.025% GEL, TWO TIMES A WEEK
     Route: 061
  5. PANOXYL [Concomitant]
     Active Substance: BENZOYL PEROXIDE
     Indication: ACNE
     Dosage: BENZOYL PEROXIDE CREAMY WASH 4% BID
     Dates: start: 20100907
  6. BENADRYL [Concomitant]
     Active Substance: DIPHENHYDRAMINE HYDROCHLORIDE
     Indication: PRODUCT USED FOR UNKNOWN INDICATION
  7. LODINE [Suspect]
     Active Substance: ETODOLAC
     Indication: PRODUCT USED FOR UNKNOWN INDICATION
     Route: 065
  8. IBUPROFEN. [Concomitant]
     Active Substance: IBUPROFEN
     Indication: PRODUCT USED FOR UNKNOWN INDICATION
  9. SOLODYN [Suspect]
     Active Substance: MINOCYCLINE HYDROCHLORIDE
     Route: 048
     Dates: start: 20110106, end: 201206
  10. VITAMINS [Concomitant]
     Active Substance: VITAMINS
     Indication: PRODUCT USED FOR UNKNOWN INDICATION
  11. TYLENOL [Concomitant]
     Active Substance: ACETAMINOPHEN
     Indication: PRODUCT USED FOR UNKNOWN INDICATION

REACTIONS (29)
  - Lupus-like syndrome [Recovering/Resolving]
  - Back pain [Unknown]
  - Psoriasis [Unknown]
  - Therapy interrupted [Unknown]
  - Mitral valve prolapse [Unknown]
  - Abdominal distension [Unknown]
  - Alopecia [Unknown]
  - Dry eye [Unknown]
  - Liver function test increased [Recovered/Resolved]
  - Condition aggravated [Unknown]
  - Abdominal pain upper [Unknown]
  - Thirst [Unknown]
  - Dry mouth [Unknown]
  - Drug hypersensitivity [Unknown]
  - Ocular hyperaemia [Unknown]
  - Flatulence [Unknown]
  - Temperature intolerance [Unknown]
  - Headache [Unknown]
  - Abdominal pain [Unknown]
  - Pruritus [Unknown]
  - Asthma [Recovering/Resolving]
  - Bronchitis [Unknown]
  - Palpitations [Unknown]
  - White blood cell count decreased [Unknown]
  - Weight decreased [Unknown]
  - Autoimmune thyroiditis [Unknown]
  - Thyroid mass [Unknown]
  - Hepatomegaly [Unknown]
  - Nausea [Unknown]

NARRATIVE: CASE EVENT DATE: 2012
